FAERS Safety Report 7288121 (Version 4)
Quarter: 2012Q4

REPORT INFORMATION
  Report Type: 
  Country: US (occurrence: US)
  Receive Date: 20100222
  Receipt Date: 20121026
  Transmission Date: 20130627
  Serious: Yes (Other)
  Sender: FDA-Public Use
  Company Number: US-BRISTOL-MYERS SQUIBB COMPANY-14620595

PATIENT
  Age: 64 Year
  Sex: Female
  Weight: 60 kg

DRUGS (7)
  1. ORENCIA [Suspect]
     Indication: RHEUMATOID ARTHRITIS
     Dosage: Started Approx 2-3 months ago;
3 vials of infusion
     Route: 042
     Dates: start: 2009
  2. PREDNIMUSTINE [Suspect]
     Indication: RHEUMATOID ARTHRITIS
     Dates: start: 200712
  3. SULFADIAZINE [Concomitant]
  4. PLAQUENIL [Concomitant]
  5. MINOCYCLINE [Concomitant]
  6. KETOPROFEN [Concomitant]
  7. PREDNISONE [Concomitant]

REACTIONS (3)
  - Arthropathy [Unknown]
  - Herpes zoster [Recovered/Resolved]
  - White blood cell count increased [Unknown]
